FAERS Safety Report 20535982 (Version 8)
Quarter: 2023Q2

REPORT INFORMATION
  Report Type: Report from Study
  Country: NL (occurrence: NL)
  Receive Date: 20220302
  Receipt Date: 20230418
  Transmission Date: 20230721
  Serious: Yes (Disabling, Other)
  Sender: FDA-Public Use
  Company Number: NL-BRISTOL-MYERS SQUIBB COMPANY-BMS-2022-027142

PATIENT
  Age: 67 Year
  Sex: Female
  Weight: 77 kg

DRUGS (2)
  1. NIVOLUMAB [Suspect]
     Active Substance: NIVOLUMAB
     Indication: Malignant melanoma
     Dosage: 3MG/KG
     Route: 042
     Dates: start: 20220106, end: 20220106
  2. IPILIMUMAB [Suspect]
     Active Substance: IPILIMUMAB
     Indication: Malignant melanoma
     Route: 042
     Dates: start: 20220106, end: 20220106

REACTIONS (3)
  - Hypoacusis [Recovered/Resolved with Sequelae]
  - Uveitis [Recovered/Resolved]
  - Rash maculo-papular [Recovered/Resolved]

NARRATIVE: CASE EVENT DATE: 20220114
